FAERS Safety Report 18955721 (Version 1)
Quarter: 2021Q1

REPORT INFORMATION
  Report Type: Report from Study
  Country: US (occurrence: US)
  Receive Date: 20210301
  Receipt Date: 20210301
  Transmission Date: 20210420
  Serious: Yes (Death, Other)
  Sender: FDA-Public Use
  Company Number: US-PFIZER INC-2021214172

PATIENT
  Age: 61 Year
  Sex: Female

DRUGS (2)
  1. AZITHROMYCIN ANHYDROUS. [Suspect]
     Active Substance: AZITHROMYCIN ANHYDROUS
     Indication: COVID-19
     Dosage: UNK, (DISCONTINUED AFTER 4 OF 5 PLANNED DAYS)
     Dates: start: 2020, end: 2020
  2. HYDROXYCHLOROQUINE [Suspect]
     Active Substance: HYDROXYCHLOROQUINE
     Indication: COVID-19
     Dosage: UNK, (DISCONTINUED AFTER 4 OF 5 PLANNED DAYS)
     Dates: start: 2020, end: 2020

REACTIONS (3)
  - Off label use [Unknown]
  - Arrhythmia [Fatal]
  - Leukopenia [Fatal]

NARRATIVE: CASE EVENT DATE: 2020
